FAERS Safety Report 5724389-6 (Version None)
Quarter: 2008Q2

REPORT INFORMATION
  Report Type: 
  Country: None (occurrence: None)
  Receive Date: 20080429
  Receipt Date: 20080411
  Transmission Date: 20081010
  Serious: Yes (Other)
  Sender: FDA-Public Use
  Company Number: T08-UKI-00962-01

PATIENT
  Age: 75 Year
  Sex: Male

DRUGS (6)
  1. MEMANTINE HCL [Suspect]
     Indication: PARKINSON'S DISEASE
     Dates: start: 20080130, end: 20080226
  2. SINEMENT [Concomitant]
  3. ATENOLOL [Concomitant]
  4. LISINOPRIL [Concomitant]
  5. ACETAMINOPHEN W/ CODEINE [Concomitant]
  6. STALEVO 100 [Concomitant]

REACTIONS (9)
  - ASTHENIA [None]
  - BLOOD UREA INCREASED [None]
  - ELECTROCARDIOGRAM ABNORMAL [None]
  - FEELING HOT [None]
  - FLUSHING [None]
  - GLOMERULAR FILTRATION RATE DECREASED [None]
  - PARAESTHESIA [None]
  - SENSORY DISTURBANCE [None]
  - SINUS BRADYCARDIA [None]
